FAERS Safety Report 24284521 (Version 1)
Quarter: 2024Q3

REPORT INFORMATION
  Report Type: Spontaneous
  Country: US (occurrence: US)
  Receive Date: 20240905
  Receipt Date: 20240905
  Transmission Date: 20241016
  Serious: Yes (Other)
  Sender: Unknown Manufacturer
  Company Number: US-MELINTA THERAPEUTICS, LLC-US-MLNT-24-00410

PATIENT

DRUGS (2)
  1. METOPROLOL SUCCINATE [Suspect]
     Active Substance: METOPROLOL SUCCINATE
     Indication: Product used for unknown indication
     Dosage: UNK
     Route: 048
     Dates: end: 202406
  2. TEZSPIRE [Concomitant]
     Active Substance: TEZEPELUMAB-EKKO
     Indication: Asthma
     Dosage: 210 MILLIGRAM, 4W
     Route: 058
     Dates: start: 202211

REACTIONS (8)
  - Atrial fibrillation [Unknown]
  - Hypersensitivity [Unknown]
  - Obesity [Unknown]
  - Skin wrinkling [Unknown]
  - Fatigue [Unknown]
  - Bradycardia [Unknown]
  - Dyspnoea exertional [Unknown]
  - Tinnitus [Unknown]
